FAERS Safety Report 12241682 (Version 1)
Quarter: 2016Q2

REPORT INFORMATION
  Report Type: Spontaneous
  Country: GB (occurrence: GB)
  Receive Date: 20160406
  Receipt Date: 20160406
  Transmission Date: 20160815
  Serious: Yes (Other)
  Sender: FDA-Public Use
  Company Number: GB-TEVA-648738ACC

PATIENT
  Age: 69 Year
  Sex: Male

DRUGS (3)
  1. ADOPORT [Suspect]
     Active Substance: TACROLIMUS
     Route: 065
  2. MYFENAX [Suspect]
     Active Substance: MYCOPHENOLATE MOFETIL
     Route: 065
  3. PREDNISOLONE. [Suspect]
     Active Substance: PREDNISOLONE
     Route: 065

REACTIONS (4)
  - Influenza [Unknown]
  - Urethral stent insertion [Unknown]
  - Urinary tract infection [Unknown]
  - Dysuria [Unknown]

NARRATIVE: CASE EVENT DATE: 201603
